FAERS Safety Report 7862733 (Version 3)
Quarter: 2014Q2

REPORT INFORMATION
  Report Type: Spontaneous
  Country: GB (occurrence: GB)
  Receive Date: 20110318
  Receipt Date: 20140613
  Transmission Date: 20141212
  Serious: Yes (Other)
  Sender: FDA-Public Use
  Company Number: GB-MERCK-1103GBR00023B1

PATIENT
  Sex: Female
  Weight: .92 kg

DRUGS (5)
  1. ISENTRESS [Suspect]
     Dosage: 800 MG, QD
     Route: 064
     Dates: start: 20110218, end: 20110219
  2. REYATAZ [Concomitant]
     Dosage: 300 MG, QD
     Route: 064
     Dates: start: 20101207
  3. NORVIR [Concomitant]
     Dosage: 100 MG, QD
     Route: 064
     Dates: start: 20101207
  4. TRUVADA [Concomitant]
     Dosage: 1 DF, QD
     Route: 064
     Dates: start: 20101207
  5. VIRAMUNE [Concomitant]
     Dosage: 400 MG, QD
     Route: 064
     Dates: start: 20110218, end: 20110219

REACTIONS (3)
  - Low birth weight baby [Unknown]
  - Premature baby [Unknown]
  - Foetal exposure during pregnancy [Recovered/Resolved]
